FAERS Safety Report 5294004-7 (Version None)
Quarter: 2007Q1

REPORT INFORMATION
  Report Type: 
  Country: None (occurrence: None)
  Receive Date: 20070116
  Receipt Date: 20061016
  Transmission Date: 20070707
  Serious: Yes (Hospitalization, Other)
  Sender: FDA-Public Use
  Company Number: HQWYE688604MAY04

PATIENT
  Age: 49 Year
  Sex: Female

DRUGS (2)
  1. PREMPRO [Suspect]
     Indication: HORMONE REPLACEMENT THERAPY
     Dosage: 1 TABLET DAILY, UNSPECIFIED, ORAL
     Route: 048
     Dates: start: 19990910, end: 19991225
  2. PREMARIN [Suspect]

REACTIONS (2)
  - DEEP VEIN THROMBOSIS [None]
  - PULMONARY EMBOLISM [None]
